FAERS Safety Report 5387244-X (Version None)
Quarter: 2007Q3

REPORT INFORMATION
  Report Type: 
  Country: None (occurrence: None)
  Receive Date: 20070706
  Receipt Date: 20070501
  Transmission Date: 20080115
  Serious: Yes (Other)
  Sender: FDA-Public Use
  Company Number: PHEH2007US05303

PATIENT
  Sex: Female

DRUGS (1)
  1. TEKTURNA [Suspect]
     Dosage: 150 MG, QD

REACTIONS (5)
  - ANGIOEDEMA [None]
  - CAPILLARY DISORDER [None]
  - SKIN SWELLING [None]
  - SWELLING FACE [None]
  - SWOLLEN TONGUE [None]
